FAERS Safety Report 10338280 (Version 1)
Quarter: 2014Q3

REPORT INFORMATION
  Report Type: Spontaneous
  Country: US (occurrence: US)
  Receive Date: 20140724
  Receipt Date: 20140724
  Transmission Date: 20150326
  Serious: No
  Sender: FDA-Public Use
  Company Number: US-PFIZER INC-2014201622

PATIENT
  Age: 78 Year
  Sex: Male
  Weight: 85.71 kg

DRUGS (1)
  1. SUTENT [Suspect]
     Active Substance: SUNITINIB MALATE
     Dosage: 37.5 MG (25 MG + 12.5 MG), UNKNOWN FREQUENCY
     Dates: start: 201309

REACTIONS (1)
  - Blood glucose decreased [Unknown]
